FAERS Safety Report 20333988 (Version 3)
Quarter: 2022Q1

REPORT INFORMATION
  Report Type: Spontaneous
  Country: US (occurrence: None)
  Receive Date: 20220113
  Receipt Date: 20220124
  Transmission Date: 20220423
  Serious: Yes (Death, Life-Threatening, Hospitalization)
  Sender: FDA-Public Use
  Company Number: US-ROCHE-2999152

PATIENT
  Age: 54 Year
  Sex: Male
  Weight: 107 kg

DRUGS (41)
  1. ACTEMRA [Suspect]
     Active Substance: TOCILIZUMAB
     Indication: COVID-19
     Route: 042
     Dates: start: 20220104, end: 20220104
  2. ACETAMINOPHEN [Concomitant]
     Active Substance: ACETAMINOPHEN
     Dates: start: 20220105
  3. ACETAMINOPHEN [Concomitant]
     Active Substance: ACETAMINOPHEN
     Dates: start: 20220108
  4. ALBUTEROL [Concomitant]
     Active Substance: ALBUTEROL
     Dates: start: 20211227, end: 20220104
  5. ASPIRIN [Concomitant]
     Active Substance: ASPIRIN
     Dates: start: 20220106, end: 20220106
  6. ASPIRIN [Concomitant]
     Active Substance: ASPIRIN
     Dates: start: 20220110
  7. AZITHROMYCIN [Concomitant]
     Active Substance: AZITHROMYCIN
     Dates: start: 20211227, end: 20211227
  8. BENZONATATE [Concomitant]
     Active Substance: BENZONATATE
     Dates: start: 20211228, end: 20220105
  9. CALCIUM CARBONATE [Concomitant]
     Active Substance: CALCIUM CARBONATE
     Dates: start: 20220106, end: 20220106
  10. CEFTRIAXONE [Concomitant]
     Active Substance: CEFTRIAXONE
     Dates: start: 20211227, end: 20220102
  11. DEXAMETHASONE [Concomitant]
     Active Substance: DEXAMETHASONE
     Dates: start: 20211227
  12. DOXYCYCLINE [Concomitant]
     Active Substance: DOXYCYCLINE
     Dates: start: 20211227, end: 20220103
  13. ENOXAPARIN [Concomitant]
     Active Substance: ENOXAPARIN
     Dates: start: 20211228
  14. ENOXAPARIN [Concomitant]
     Active Substance: ENOXAPARIN
     Dates: start: 20220109, end: 20220111
  15. FOLIC ACID [Concomitant]
     Active Substance: FOLIC ACID
     Dates: start: 20211228, end: 20220105
  16. FOLIC ACID [Concomitant]
     Active Substance: FOLIC ACID
     Dates: start: 20220111, end: 20220113
  17. GUAIFENESIN [Concomitant]
     Active Substance: GUAIFENESIN
     Dates: start: 20211228, end: 20220105
  18. KETOROLAC [Concomitant]
     Active Substance: KETOROLAC TROMETHAMINE
     Dates: start: 20220104, end: 20220104
  19. LORAZEPAM [Concomitant]
     Active Substance: LORAZEPAM
     Dates: start: 20211228
  20. LORAZEPAM [Concomitant]
     Active Substance: LORAZEPAM
     Dates: start: 20220108, end: 20220109
  21. METOPROLOL [Concomitant]
     Active Substance: METOPROLOL
     Dates: start: 20211228, end: 20211228
  22. MORPHINE [Concomitant]
     Active Substance: MORPHINE
     Dates: start: 20220105
  23. VITAMINS [Concomitant]
     Active Substance: VITAMINS
     Dates: start: 20210107
  24. PANTOPRAZOLE [Concomitant]
     Active Substance: PANTOPRAZOLE
     Dates: start: 20220107
  25. TRAZODONE [Concomitant]
     Active Substance: TRAZODONE HYDROCHLORIDE
     Dates: start: 20211227, end: 20220102
  26. THIAMINE [Concomitant]
     Active Substance: THIAMINE
     Dates: start: 20211228, end: 20220105
  27. UNSPECIFIED INGREDIENT [Concomitant]
     Active Substance: UNSPECIFIED INGREDIENT
     Dates: start: 20210107
  28. FENTANYL [Concomitant]
     Active Substance: FENTANYL
     Dates: start: 20220108
  29. HEPARIN [Concomitant]
     Active Substance: HEPARIN SODIUM
     Dates: start: 20220111
  30. LACTOBACILLUS ACIDOPHILUS [Concomitant]
     Active Substance: LACTOBACILLUS ACIDOPHILUS
     Dates: start: 20220110, end: 20220113
  31. MIDAZOLAM [Concomitant]
     Active Substance: MIDAZOLAM
     Dates: start: 20220109, end: 20220110
  32. MIDODRINE [Concomitant]
     Active Substance: MIDODRINE
     Dates: start: 20220110, end: 20220114
  33. NOREPINEPHRINE [Concomitant]
     Active Substance: NOREPINEPHRINE
     Dates: start: 20220111
  34. POTASSIUM PHOSPHATE [Concomitant]
     Active Substance: POTASSIUM PHOSPHATE
     Dates: start: 20220108, end: 20220109
  35. PROPOFOL [Concomitant]
     Active Substance: PROPOFOL
     Dates: start: 20220109
  36. QUETIAPINE [Concomitant]
     Active Substance: QUETIAPINE
     Dates: start: 20220110, end: 20220113
  37. ROCURONIUM [Concomitant]
     Active Substance: ROCURONIUM BROMIDE
     Dates: start: 20220112, end: 20220114
  38. SODIUM ACETATE [Concomitant]
     Active Substance: SODIUM ACETATE
     Dates: start: 20220108, end: 20220109
  39. VECURONIUM [Concomitant]
     Active Substance: VECURONIUM BROMIDE
     Dates: start: 20220111, end: 20220112
  40. ZINC SULFATE [Concomitant]
     Active Substance: ZINC SULFATE
  41. PHENOBARBITAL [Concomitant]
     Active Substance: PHENOBARBITAL
     Dates: start: 20220109, end: 20220113

REACTIONS (3)
  - Death [Fatal]
  - Fibrin D dimer increased [Unknown]
  - Off label use [Unknown]

NARRATIVE: CASE EVENT DATE: 20220114
